FAERS Safety Report 6347560-1 (Version None)
Quarter: 2009Q3

REPORT INFORMATION
  Report Type: 
  Country: None (occurrence: None)
  Receive Date: 20090910
  Receipt Date: 20090907
  Transmission Date: 20100115
  Serious: Yes (Other)
  Sender: FDA-Public Use
  Company Number: GB-TEVA-208369ISR

PATIENT
  Age: 52 Year
  Sex: Male

DRUGS (3)
  1. PREDNISOLONE [Suspect]
  2. CYCLOSPORINE [Suspect]
     Indication: STEM CELL TRANSPLANT
  3. MYCOPHENOLATE MOFETIL [Suspect]

REACTIONS (5)
  - DIARRHOEA [None]
  - GASTROENTERITIS NOROVIRUS [None]
  - GRAFT VERSUS HOST DISEASE [None]
  - NAUSEA [None]
  - VOMITING [None]
